FAERS Safety Report 8234105-4 (Version None)
Quarter: 2012Q1

REPORT INFORMATION
  Report Type: 
  Country: None (occurrence: None)
  Receive Date: 20120326
  Receipt Date: 20120326
  Transmission Date: 20120608
  Serious: No
  Sender: FDA-Public Use
  Company Number: None

PATIENT
  Age: 53 Year
  Sex: Male
  Weight: 81.646 kg

DRUGS (2)
  1. SERZONE [Suspect]
     Indication: OBSESSIVE-COMPULSIVE DISORDER
     Dosage: 100.0 MG
     Route: 048
     Dates: start: 20011105, end: 20011117
  2. SERZONE [Suspect]
     Indication: DEPRESSION
     Dosage: 100.0 MG
     Route: 048
     Dates: start: 20011105, end: 20011117

REACTIONS (1)
  - TINNITUS [None]
